FAERS Safety Report 4413704-1 (Version None)
Quarter: 2004Q2

REPORT INFORMATION
  Report Type: 
  Country: None (occurrence: None)
  Receive Date: 20040630
  Receipt Date: 20040304
  Transmission Date: 20050107
  Serious: No
  Sender: FDA-Public Use
  Company Number: 04P-163-0252278-00

PATIENT
  Age: 68 Year
  Sex: Female

DRUGS (11)
  1. HUMIRA [Suspect]
     Indication: RHEUMATOID ARTHRITIS
     Dosage: 40 MG, 1 IN 2 WK, SUBCUTANEOUS
     Route: 058
     Dates: start: 20030901, end: 20040101
  2. METHOTREXATE [Concomitant]
  3. FOLIC ACID [Concomitant]
  4. CELECOXIB [Concomitant]
  5. PREDNISONE [Concomitant]
  6. AMITRIPTYLINE HCL [Concomitant]
  7. PROPACET 100 [Concomitant]
  8. CALCIUM [Concomitant]
  9. FOSINOPRIL SODIUM [Concomitant]
  10. OMEPRAZOLE [Concomitant]
  11. HYDROCHLOROTHIAZIDE [Concomitant]

REACTIONS (3)
  - DIZZINESS [None]
  - DYSPHAGIA [None]
  - HEADACHE [None]
